FAERS Safety Report 14379023 (Version 1)
Quarter: 2018Q1

REPORT INFORMATION
  Report Type: Spontaneous
  Country: US (occurrence: US)
  Receive Date: 20180112
  Receipt Date: 20180112
  Transmission Date: 20180509
  Serious: Yes (Disabling)
  Sender: FDA-Public Use
  Company Number: US-TEVA-2018-US-844538

PATIENT

DRUGS (5)
  1. DOCETAXEL. [Suspect]
     Active Substance: DOCETAXEL
     Dosage: 120MG IN 250ML NS;
     Route: 065
     Dates: start: 20140416, end: 20140729
  2. DOCETAXEL. [Suspect]
     Active Substance: DOCETAXEL
     Dosage: 124 MG IN 250ML NS;
     Route: 042
     Dates: start: 20140416, end: 20140729
  3. DOCETAXEL. [Suspect]
     Active Substance: DOCETAXEL
     Dosage: 100MG IV IN 250ML NS
     Route: 042
     Dates: start: 20140416, end: 20140729
  4. DOCETAXEL. [Suspect]
     Active Substance: DOCETAXEL
     Dosage: 120MG IV IN 250ML NS;
     Route: 042
     Dates: start: 20140416, end: 20140729
  5. DOCETAXEL. [Suspect]
     Active Substance: DOCETAXEL
     Dosage: 122 MG IN 250ML NS;
     Route: 065
     Dates: start: 20140416, end: 20140729

REACTIONS (1)
  - Alopecia [Not Recovered/Not Resolved]
